FAERS Safety Report 10924297 (Version 1)
Quarter: 2015Q1

REPORT INFORMATION
  Report Type: Spontaneous
  Country: US (occurrence: None)
  Receive Date: 20150129
  Receipt Date: 20150129
  Transmission Date: 20150721
  Serious: Yes (Hospitalization)
  Sender: FDA-Public Use
  Company Number: 2014012207

PATIENT
  Age: 52 Year
  Sex: Male

DRUGS (8)
  1. ASPIRIN (ACETYLSALICYLIC ACID) [Concomitant]
     Active Substance: ASPIRIN
  2. CEFAZOLIN (CEFAZOLIN SODIUM) [Concomitant]
  3. KEPPRA XR [Suspect]
     Active Substance: LEVETIRACETAM
     Indication: POST-TRAUMATIC EPILEPSY
     Dosage: 1000 MG LOADING DOSE, INTRAVENOUS
     Route: 042
     Dates: start: 201210, end: 20121017
  4. PROPOFOL (PROPOFOL) [Concomitant]
     Active Substance: PROPOFOL
  5. PANTOPRAZOLE SODIUM (PANTOPRAZOLE SODIUM) [Concomitant]
  6. FENTANYL (FENTANYL) [Concomitant]
     Active Substance: FENTANYL
  7. ENOXAPARIN (ENOXAPARIN) [Concomitant]
     Active Substance: ENOXAPARIN
  8. QUETIAPINE (QUETIAPINE) [Concomitant]
     Active Substance: QUETIAPINE

REACTIONS (1)
  - Neutropenia [None]

NARRATIVE: CASE EVENT DATE: 201210
